FAERS Safety Report 4592932-9 (Version None)
Quarter: 2005Q1

REPORT INFORMATION
  Report Type: 
  Country: None (occurrence: None)
  Receive Date: 20050228
  Receipt Date: 20050114
  Transmission Date: 20050727
  Serious: Yes (Life-Threatening)
  Sender: FDA-Public Use
  Company Number: JP-GLAXOSMITHKLINE-B0364425A

PATIENT
  Age: 51 Year
  Sex: Male
  Weight: 51 kg

DRUGS (29)
  1. ALKERAN [Suspect]
     Indication: STEM CELL TRANSPLANT
     Route: 042
     Dates: start: 20040927, end: 20040927
  2. CYLOCIDE [Suspect]
     Indication: STEM CELL TRANSPLANT
     Dates: start: 20040923, end: 20040926
  3. ETOPOSIDE [Suspect]
     Indication: STEM CELL TRANSPLANT
     Route: 042
     Dates: start: 20040923, end: 20040926
  4. CYMERIN [Suspect]
     Indication: STEM CELL TRANSPLANT
     Route: 042
     Dates: start: 20040922, end: 20040922
  5. GRAN [Concomitant]
     Dates: start: 20041001, end: 20041009
  6. ZYLORIC [Concomitant]
     Route: 048
     Dates: start: 20040811, end: 20041002
  7. ITRIZOLE [Concomitant]
     Route: 048
     Dates: start: 20040811, end: 20041002
  8. GASTER D [Concomitant]
     Route: 048
     Dates: start: 20040811, end: 20041002
  9. PREDONINE [Concomitant]
     Route: 048
     Dates: start: 20040811, end: 20040927
  10. PREDONINE [Concomitant]
     Route: 048
     Dates: start: 20040928, end: 20041002
  11. SOLDEM 3A [Concomitant]
     Route: 042
     Dates: start: 20040922, end: 20041001
  12. FUNGIZONE [Concomitant]
     Route: 055
     Dates: start: 20040924, end: 20041001
  13. KYTRIL [Concomitant]
     Route: 042
     Dates: start: 20040922, end: 20040927
  14. SOLU-CORTEF [Concomitant]
     Dates: start: 20040929, end: 20040929
  15. PHYSIO 35 [Concomitant]
     Route: 042
     Dates: start: 20041001, end: 20041005
  16. PHYSIO 35 [Concomitant]
     Route: 042
     Dates: start: 20041013, end: 20041025
  17. MODACIN [Concomitant]
     Route: 042
     Dates: start: 20041001, end: 20041003
  18. FLUCONAZOLE [Concomitant]
     Route: 042
     Dates: start: 20041001, end: 20041005
  19. MEROPEN [Concomitant]
     Route: 042
     Dates: start: 20041003, end: 20041012
  20. AMIKACIN SULFATE [Concomitant]
     Dates: start: 20041002, end: 20041010
  21. FUNGUARD [Concomitant]
     Route: 042
     Dates: start: 20041006, end: 20041013
  22. CALCIUM CARBONATE [Concomitant]
     Route: 042
     Dates: start: 20041005, end: 20041012
  23. GLOVENIN-I [Concomitant]
     Route: 042
     Dates: start: 20041002, end: 20041002
  24. GLOVENIN-I [Concomitant]
     Route: 042
     Dates: start: 20041003, end: 20041003
  25. PREDONINE [Concomitant]
     Dates: start: 20041003, end: 20041007
  26. MINERALIN [Concomitant]
     Route: 042
     Dates: start: 20041005, end: 20041012
  27. DOPAMINE [Concomitant]
     Route: 042
     Dates: start: 20041002, end: 20041012
  28. DOBUTREX [Concomitant]
     Route: 042
     Dates: start: 20041002, end: 20041004
  29. ROPION [Concomitant]
     Route: 042

REACTIONS (3)
  - RESPIRATORY FAILURE [None]
  - SEPTIC SHOCK [None]
  - WHOLE BLOOD TRANSFUSION [None]
